FAERS Safety Report 9818407 (Version 1)
Quarter: 2013Q4

REPORT INFORMATION
  Report Type: Spontaneous
  Country: US (occurrence: None)
  Receive Date: 20131223
  Receipt Date: 20131223
  Transmission Date: 20140711
  Serious: Yes (Other)
  Sender: FDA-Public Use
  Company Number: 219306

PATIENT
  Age: 62 Year
  Sex: Male

DRUGS (3)
  1. PICATO GEL [Suspect]
     Indication: ACTINIC KERATOSIS
     Dosage: (FOR 3 DAYS), ON FOREHEAD
     Dates: start: 20121001, end: 20121003
  2. ATENOLOL (ATENOLOL) (50 MG) [Concomitant]
  3. ASPIRIN (ACETYLSALICYLIC ACID) (81 MG) [Concomitant]

REACTIONS (2)
  - Skin exfoliation [None]
  - Erythema [None]
